FAERS Safety Report 19988853 (Version 3)
Quarter: 2023Q4

REPORT INFORMATION
  Report Type: Report from Study
  Country: RU (occurrence: RU)
  Receive Date: 20211024
  Receipt Date: 20231106
  Transmission Date: 20240109
  Serious: Yes (Hospitalization)
  Sender: FDA-Public Use
  Company Number: RU-NOVARTISPH-NVSC2021RU221017

PATIENT
  Age: 1 Year
  Sex: Male
  Weight: 6.8 kg

DRUGS (8)
  1. ZOLGENSMA [Suspect]
     Active Substance: ONASEMNOGENE ABEPARVOVEC-XIOI
     Indication: Spinal muscular atrophy
     Dosage: 38.5 ML, ONCE/SINGLE
     Route: 042
     Dates: start: 20210921
  2. CEFOTAXIME [Concomitant]
     Active Substance: CEFOTAXIME SODIUM
     Indication: Product used for unknown indication
     Dosage: UNK
     Route: 065
  3. PREDNISONE [Concomitant]
     Active Substance: PREDNISONE
     Indication: Product used for unknown indication
     Dosage: 2 MG/KG, QD
     Route: 065
  4. PREDNISONE [Concomitant]
     Active Substance: PREDNISONE
     Dosage: 1 MG/KG, QD
     Route: 048
     Dates: start: 20210920, end: 20211004
  5. PREDNISONE [Concomitant]
     Active Substance: PREDNISONE
     Dosage: 1 MG/KG, QD
     Route: 042
     Dates: start: 20211004, end: 20211006
  6. PREDNISONE [Concomitant]
     Active Substance: PREDNISONE
     Dosage: 2 MG/KG, QD
     Route: 042
     Dates: start: 20211006, end: 20211010
  7. PREDNISONE [Concomitant]
     Active Substance: PREDNISONE
     Dosage: 1 MG/KG, QD
     Route: 042
     Dates: start: 20211010, end: 20211025
  8. PREDNISONE [Concomitant]
     Active Substance: PREDNISONE
     Dosage: 1 MG/KG, QD
     Route: 042
     Dates: start: 20211025

REACTIONS (18)
  - Bronchitis [Not Recovered/Not Resolved]
  - Lethargy [Unknown]
  - Blood lactate dehydrogenase increased [Recovering/Resolving]
  - Blood creatine phosphokinase increased [Recovered/Resolved]
  - Blood creatine phosphokinase MB increased [Recovering/Resolving]
  - C-reactive protein increased [Recovered/Resolved]
  - Prothrombin time shortened [Not Recovered/Not Resolved]
  - Platelet count decreased [Recovered/Resolved]
  - Pyrexia [Recovered/Resolved]
  - Aspartate aminotransferase increased [Recovered/Resolved]
  - Alanine aminotransferase increased [Recovered/Resolved]
  - Rales [Unknown]
  - Crepitations [Unknown]
  - PO2 decreased [Unknown]
  - White blood cell count decreased [Unknown]
  - Tachypnoea [Unknown]
  - Tachycardia [Unknown]
  - Pyrexia [Unknown]

NARRATIVE: CASE EVENT DATE: 20210924
